FAERS Safety Report 24227151 (Version 1)
Quarter: 2024Q3

REPORT INFORMATION
  Report Type: Spontaneous
  Country: US (occurrence: US)
  Receive Date: 20240820
  Receipt Date: 20240820
  Transmission Date: 20241017
  Serious: Yes (Other)
  Sender: MYLAN
  Company Number: US-MYLANLABS-2024M1075661

PATIENT
  Age: 60 Year
  Sex: Male

DRUGS (7)
  1. TACROLIMUS [Suspect]
     Active Substance: TACROLIMUS
     Indication: Immunosuppressant drug therapy
     Dosage: UNK,10-12?NG/ML
     Route: 065
  2. MYCOPHENOLATE MOFETIL [Suspect]
     Active Substance: MYCOPHENOLATE MOFETIL
     Indication: Immunosuppressant drug therapy
     Dosage: 500 MILLIGRAM, BID
     Route: 065
  3. MYCOPHENOLATE MOFETIL [Suspect]
     Active Substance: MYCOPHENOLATE MOFETIL
     Dosage: 250 MILLIGRAM, BID (RESUMED AT A LOWER DOSE)
     Route: 065
  4. PREDNISONE [Suspect]
     Active Substance: PREDNISONE
     Indication: Immunosuppressant drug therapy
     Dosage: UNK,TAPER
     Route: 065
  5. Immunoglobulin [Concomitant]
     Indication: Parvovirus infection
     Dosage: UNK
     Route: 042
  6. Immunoglobulin [Concomitant]
     Indication: Epstein-Barr virus infection
  7. Immunoglobulin [Concomitant]
     Indication: Cytomegalovirus infection

REACTIONS (1)
  - Drug ineffective [Unknown]
